FAERS Safety Report 4919750-3 (Version None)
Quarter: 2006Q1

REPORT INFORMATION
  Report Type: 
  Country: None (occurrence: None)
  Receive Date: 20060223
  Receipt Date: 20060210
  Transmission Date: 20060701
  Serious: Yes (Hospitalization)
  Sender: FDA-Public Use
  Company Number: FR-RB-2769-2006

PATIENT
  Age: 41 Year
  Sex: Female

DRUGS (2)
  1. BUPRENORPHINE HCL [Suspect]
     Indication: DRUG USE FOR UNKNOWN INDICATION
     Route: 048
  2. BROMAZEPAM [Suspect]
     Indication: DRUG USE FOR UNKNOWN INDICATION
     Dosage: UNKNOWN DOSAGE
     Route: 048

REACTIONS (10)
  - BLOOD PRESSURE DIASTOLIC DECREASED [None]
  - BRADYCARDIA [None]
  - CONFUSIONAL STATE [None]
  - DISORIENTATION [None]
  - DRUG SCREEN POSITIVE [None]
  - ELECTROENCEPHALOGRAM ABNORMAL [None]
  - GENERAL PHYSICAL HEALTH DETERIORATION [None]
  - OVERDOSE [None]
  - SOMNOLENCE [None]
  - STATUS EPILEPTICUS [None]
